FAERS Safety Report 18557965 (Version 1)
Quarter: 2020Q4

REPORT INFORMATION
  Report Type: Spontaneous
  Country: US (occurrence: US)
  Receive Date: 20201130
  Receipt Date: 20201130
  Transmission Date: 20210114
  Serious: No
  Sender: FDA-Public Use
  Company Number: US-AUROBINDO-AUR-APL-2020-046079

PATIENT
  Sex: Female
  Weight: 108.8 kg

DRUGS (2)
  1. FLUCONAZOLE TABLETS 150 MG [Suspect]
     Active Substance: FLUCONAZOLE
     Indication: PRODUCT USED FOR UNKNOWN INDICATION
     Dosage: 1 DOSAGE FORM, SINGLE DOSE IN PAPER/PLASTIC INSERT
     Route: 048
  2. TIROSINT [Concomitant]
     Active Substance: LEVOTHYROXINE SODIUM
     Indication: THYROID DISORDER
     Dosage: UNK
     Route: 065

REACTIONS (8)
  - Rash [Unknown]
  - Feeling abnormal [Unknown]
  - Product use complaint [Unknown]
  - Influenza like illness [Unknown]
  - Reaction to excipient [Unknown]
  - Drug ineffective [Unknown]
  - Malaise [Unknown]
  - Product dosage form issue [Unknown]
